FAERS Safety Report 9821488 (Version 1)
Quarter: 2014Q1

REPORT INFORMATION
  Report Type: Spontaneous
  Country: US (occurrence: None)
  Receive Date: 20140114
  Receipt Date: 20140114
  Transmission Date: 20141002
  Serious: Yes (Death)
  Sender: FDA-Public Use
  Company Number: 1401-0066

PATIENT
  Age: 78 Year
  Sex: 0

DRUGS (1)
  1. EYLEA [Suspect]
     Dates: start: 20120703, end: 20120703

REACTIONS (1)
  - Death [None]
